FAERS Safety Report 15290878 (Version 1)
Quarter: 2018Q3

REPORT INFORMATION
  Report Type: Spontaneous
  Country: GB (occurrence: GB)
  Receive Date: 20180817
  Receipt Date: 20180817
  Transmission Date: 20181010
  Serious: Yes (Life-Threatening)
  Sender: FDA-Public Use
  Company Number: GB-TEVA-2018-GB-941943

PATIENT
  Age: 17 Year
  Sex: Female
  Weight: 50 kg

DRUGS (1)
  1. DOXYCYCLINE. [Suspect]
     Active Substance: DOXYCYCLINE
     Dosage: 200 MILLIGRAM DAILY;
     Route: 048
     Dates: end: 20180131

REACTIONS (2)
  - Dyspnoea [Recovered/Resolved with Sequelae]
  - Chills [Recovered/Resolved with Sequelae]

NARRATIVE: CASE EVENT DATE: 20180712
